FAERS Safety Report 5762357-9 (Version None)
Quarter: 2008Q3

REPORT INFORMATION
  Report Type: 
  Country: None (occurrence: None)
  Receive Date: 20080609
  Receipt Date: 20080603
  Transmission Date: 20090109
  Serious: Yes (Hospitalization)
  Sender: FDA-Public Use
  Company Number: DE-WYE-G01526308

PATIENT
  Sex: Female
  Weight: 70 kg

DRUGS (5)
  1. VENLAFAXINE HCL [Suspect]
     Dosage: OVERDOSE AMOUNT 16300 MG
     Route: 048
     Dates: start: 20080513, end: 20080513
  2. IBUPROFEN TABLETS [Suspect]
     Dosage: OVERDOSE AMOUNT 23400 MG
     Route: 048
     Dates: start: 20080513, end: 20080513
  3. CEFUROXIME [Suspect]
     Dosage: OVERDOSE AMOUNT 6000 MG
     Route: 048
     Dates: start: 20080513, end: 20080513
  4. BALDRIAN-PHYTON [Suspect]
     Dosage: OVERDOSE AMOUNT UNKNOWN
     Route: 048
     Dates: start: 20080513, end: 20080513
  5. JOHANNISKRAUT-KAPSELN [Suspect]
     Dosage: OVERDOSE AMOUNT UNKNOWN
     Route: 048
     Dates: start: 20080513, end: 20080513

REACTIONS (7)
  - ACIDOSIS [None]
  - BRADYCARDIA [None]
  - CARDIOVASCULAR INSUFFICIENCY [None]
  - CONVULSION [None]
  - HYPOTONIA [None]
  - INTENTIONAL OVERDOSE [None]
  - RESPIRATORY FAILURE [None]
